FAERS Safety Report 9337967 (Version 1)
Quarter: 2013Q2

REPORT INFORMATION
  Report Type: Spontaneous
  Country: GB (occurrence: GB)
  Receive Date: 20130609
  Receipt Date: 20130609
  Transmission Date: 20140414
  Serious: Yes (Hospitalization)
  Sender: FDA-Public Use
  Company Number: GB-MYLANLABS-2013S1011787

PATIENT
  Age: 39 Year
  Sex: Male

DRUGS (5)
  1. CLOZAPINE [Suspect]
     Indication: SCHIZOPHRENIA
     Dosage: 550MG DAILY IN DIVIDED DOSES; THEN WITHDRAWN FOR 24H AND RESTARTED AT 400MG DAILY
     Route: 065
  2. CLOZAPINE [Interacting]
     Indication: SCHIZOPHRENIA
     Dosage: 400MG DAILY
     Route: 065
  3. SODIUM VALPROATE [Interacting]
     Indication: CONVULSION PROPHYLAXIS
     Route: 065
  4. AZITHROMYCIN [Interacting]
     Indication: URETHRITIS
     Route: 065
  5. SCOPOLAMINE HYDROBROMIDE [Concomitant]
     Indication: SALIVARY HYPERSECRETION
     Route: 065

REACTIONS (2)
  - Toxicity to various agents [Recovering/Resolving]
  - Drug interaction [Recovering/Resolving]
